FAERS Safety Report 15658757 (Version 2)
Quarter: 2018Q4

REPORT INFORMATION
  Report Type: Spontaneous
  Country: SK (occurrence: SK)
  Receive Date: 20181126
  Receipt Date: 20181213
  Transmission Date: 20190205
  Serious: Yes (Hospitalization, Congenital Anomaly, Other)
  Sender: FDA-Public Use
  Company Number: PHHY2018SK166146

PATIENT
  Weight: 1.75 kg

DRUGS (1)
  1. CEFUROXIME. [Suspect]
     Active Substance: CEFUROXIME
     Indication: FOETAL EXPOSURE DURING PREGNANCY
     Route: 064

REACTIONS (22)
  - Posthaemorrhagic hydrocephalus [Unknown]
  - Hypoacusis [Unknown]
  - Streptococcal infection [Unknown]
  - Anaemia [Recovered/Resolved]
  - Intracranial pressure increased [Unknown]
  - Premature rupture of membranes [Unknown]
  - Cerebral ventricle dilatation [Unknown]
  - Seizure [Recovered/Resolved with Sequelae]
  - Speech disorder [Unknown]
  - Hypotension [Unknown]
  - Haematoma [Unknown]
  - Hypoalbuminaemia [Unknown]
  - Asphyxia [Unknown]
  - Intraventricular haemorrhage [Unknown]
  - Psychomotor skills impaired [Unknown]
  - Premature baby [Unknown]
  - Foetal exposure during pregnancy [Unknown]
  - Tachycardia [Unknown]
  - Leukopenia [Unknown]
  - Low birth weight baby [Unknown]
  - Oedema [Unknown]
  - Lactic acidosis [Recovering/Resolving]
